FAERS Safety Report 25317672 (Version 1)
Quarter: 2025Q2

REPORT INFORMATION
  Report Type: Spontaneous
  Country: US (occurrence: US)
  Receive Date: 20250515
  Receipt Date: 20250515
  Transmission Date: 20250717
  Serious: No
  Sender: ALKEM
  Company Number: US-ALKEM LABORATORIES LIMITED-US-ALKEM-2024-15986

PATIENT
  Age: 51 Year
  Sex: Male

DRUGS (4)
  1. AZATHIOPRINE [Suspect]
     Active Substance: AZATHIOPRINE
     Indication: Crohn^s disease
     Dosage: 50 MILLIGRAM, QD
     Route: 065
  2. LEVOFLOXACIN [Concomitant]
     Active Substance: LEVOFLOXACIN
     Indication: Anal abscess
     Route: 065
  3. METRONIDAZOLE [Concomitant]
     Active Substance: METRONIDAZOLE
     Indication: Anal abscess
     Route: 065
  4. RITUXIMAB [Concomitant]
     Active Substance: RITUXIMAB
     Indication: Optic neuritis
     Route: 065

REACTIONS (1)
  - Treatment failure [Unknown]
